FAERS Safety Report 10557097 (Version 6)
Quarter: 2018Q4

REPORT INFORMATION
  Report Type: Spontaneous
  Country: US (occurrence: US)
  Receive Date: 20141031
  Receipt Date: 20181217
  Transmission Date: 20190204
  Serious: Yes (Other)
  Sender: FDA-Public Use
  Company Number: US-PFIZER INC-2013051569

PATIENT
  Age: 50 Year
  Sex: Male

DRUGS (3)
  1. RAPAMUNE [Suspect]
     Active Substance: SIROLIMUS
     Indication: LIVER TRANSPLANT REJECTION
     Dosage: 1 MG, 3X/DAY
     Route: 048
     Dates: start: 20030224
  2. RAPAMUNE [Suspect]
     Active Substance: SIROLIMUS
     Indication: LIVER TRANSPLANT
  3. RAPAMUNE [Suspect]
     Active Substance: SIROLIMUS
     Indication: LIVER DISORDER

REACTIONS (2)
  - Myocardial infarction [Unknown]
  - Product use in unapproved indication [Unknown]

NARRATIVE: CASE EVENT DATE: 20030224
